FAERS Safety Report 8928666 (Version 5)
Quarter: 2013Q4

REPORT INFORMATION
  Report Type: Report from Study
  Country: CL (occurrence: CL)
  Receive Date: 20121128
  Receipt Date: 20131003
  Transmission Date: 20140711
  Serious: Yes (Hospitalization, Disabling)
  Sender: FDA-Public Use
  Company Number: PHHY2012CL108876

PATIENT
  Age: 61 Year
  Sex: Female

DRUGS (4)
  1. LEPONEX [Suspect]
     Indication: PARKINSON^S DISEASE
     Dosage: 25 MG, DAILY
     Route: 048
     Dates: start: 20120718
  2. SIFROL [Concomitant]
     Indication: PARKINSON^S DISEASE
     Dosage: UNK UKN, UNK
  3. GLIBENCLAMIDE [Concomitant]
     Indication: DIABETES MELLITUS
     Dosage: UNK UKN, UNK
  4. GLUCOPHAGE [Concomitant]
     Indication: DIABETES MELLITUS
     Dosage: UNK UKN, UNK

REACTIONS (6)
  - Spinal fracture [Unknown]
  - Osteomyelitis [Unknown]
  - Intervertebral disc protrusion [Recovering/Resolving]
  - Back pain [Unknown]
  - Abasia [Unknown]
  - Nosocomial infection [Recovered/Resolved]
